FAERS Safety Report 14362314 (Version 1)
Quarter: 2018Q1

REPORT INFORMATION
  Report Type: Spontaneous
  Country: US (occurrence: US)
  Receive Date: 20180108
  Receipt Date: 20180108
  Transmission Date: 20180509
  Serious: No
  Sender: FDA-Public Use
  Company Number: US-TEVA-2017-US-840045

PATIENT
  Sex: Female

DRUGS (1)
  1. LIDOCAINE W/PRILOCAINE [Suspect]
     Active Substance: LIDOCAINE\PRILOCAINE
     Dosage: STRENGTH: 2.5 % / 2.5 %
     Route: 065
     Dates: start: 20171128

REACTIONS (2)
  - Product quality issue [Unknown]
  - Drug ineffective [Unknown]
